FAERS Safety Report 17695263 (Version 4)
Quarter: 2020Q3

REPORT INFORMATION
  Report Type: Report from Study
  Country: US (occurrence: US)
  Receive Date: 20200422
  Receipt Date: 20200701
  Transmission Date: 20201102
  Serious: Yes (Other)
  Sender: FDA-Public Use
  Company Number: NVSC2020US105871

PATIENT
  Age: 8 Year
  Sex: Female
  Weight: 26.3 kg

DRUGS (4)
  1. ILARIS [Suspect]
     Active Substance: CANAKINUMAB
     Indication: JUVENILE IDIOPATHIC ARTHRITIS
     Dosage: 80 MG, QMO
     Route: 065
     Dates: start: 20200418, end: 20200419
  2. ILARIS [Suspect]
     Active Substance: CANAKINUMAB
     Indication: STILL^S DISEASE
     Dosage: 100 MG
     Route: 065
  3. ILARIS [Suspect]
     Active Substance: CANAKINUMAB
     Dosage: 150 MG, OTHER (EVERY 28 DAYS)
     Route: 058
     Dates: start: 20200513
  4. ILARIS [Suspect]
     Active Substance: CANAKINUMAB
     Dosage: 150 MG, Q4W
     Route: 058
     Dates: start: 20200612

REACTIONS (5)
  - Juvenile idiopathic arthritis [Unknown]
  - Rash erythematous [Not Recovered/Not Resolved]
  - Rash [Unknown]
  - Inappropriate schedule of product administration [Unknown]
  - Pruritus [Not Recovered/Not Resolved]

NARRATIVE: CASE EVENT DATE: 20200418
